FAERS Safety Report 4743693-1 (Version None)
Quarter: 2005Q3

REPORT INFORMATION
  Report Type: 
  Country: None (occurrence: None)
  Receive Date: 20050812
  Receipt Date: 20050801
  Transmission Date: 20060218
  Serious: Yes (Hospitalization)
  Sender: FDA-Public Use
  Company Number: US-BRACCO-BDI-007412

PATIENT
  Age: 45 Year
  Sex: Female

DRUGS (3)
  1. ISOVUE [Suspect]
     Indication: SPLENIC INFARCTION
     Route: 042
     Dates: start: 20050730, end: 20050730
  2. ISOVUE [Suspect]
     Route: 042
     Dates: start: 20050730, end: 20050730
  3. ISOVUE [Suspect]
     Route: 042
     Dates: start: 20050730, end: 20050730

REACTIONS (8)
  - CARDIO-RESPIRATORY ARREST [None]
  - DEPRESSED LEVEL OF CONSCIOUSNESS [None]
  - FOAMING AT MOUTH [None]
  - MYDRIASIS [None]
  - PULSE ABSENT [None]
  - PUPIL FIXED [None]
  - RESPIRATION ABNORMAL [None]
  - VENTRICULAR TACHYCARDIA [None]
